FAERS Safety Report 8481203-6 (Version None)
Quarter: 2012Q3

REPORT INFORMATION
  Report Type: 
  Country: None (occurrence: None)
  Receive Date: 20120702
  Receipt Date: 20120621
  Transmission Date: 20120928
  Serious: Yes (Other)
  Sender: FDA-Public Use
  Company Number: GB-ASTRAZENECA-2012SE41908

PATIENT
  Age: 63 Year
  Sex: Male
  Weight: 100 kg

DRUGS (20)
  1. FUROSEMIDE [Concomitant]
     Dates: start: 20120514, end: 20120611
  2. PHENYTOIN SODIUM [Concomitant]
     Dates: start: 20120321
  3. LISINOPRIL [Concomitant]
     Dates: start: 20120215, end: 20120314
  4. VARENICLINE [Concomitant]
     Dates: start: 20120522, end: 20120523
  5. SILDENAFIL [Concomitant]
     Dates: start: 20120321, end: 20120418
  6. SYMBICORT [Concomitant]
     Dates: start: 20120514, end: 20120515
  7. BUDESONIDE [Concomitant]
     Dates: start: 20120321, end: 20120418
  8. RANITIDINE [Concomitant]
     Dates: start: 20120612
  9. SIMVASTATIN [Concomitant]
     Dates: start: 20120514, end: 20120611
  10. OMEPRAZOLE [Suspect]
     Dates: start: 20120522
  11. LISINOPRIL [Concomitant]
     Dates: start: 20120514, end: 20120611
  12. NICOTINE [Concomitant]
     Dates: start: 20120514, end: 20120515
  13. NICOTINE [Concomitant]
     Dates: start: 20120514, end: 20120521
  14. SILDENAFIL [Concomitant]
     Dates: start: 20120514, end: 20120611
  15. FUROSEMIDE [Concomitant]
     Dates: start: 20120321, end: 20120418
  16. LISINOPRIL [Concomitant]
     Dates: start: 20120326, end: 20120423
  17. SYMBICORT [Concomitant]
     Dates: start: 20120321, end: 20120322
  18. BECLOMETHASONE DIPROPIONATE [Concomitant]
     Dates: start: 20120326
  19. BUDESONIDE [Concomitant]
     Dates: start: 20120514, end: 20120611
  20. SIMVASTATIN [Concomitant]
     Dates: start: 20120321, end: 20120418

REACTIONS (3)
  - EYE SWELLING [None]
  - OEDEMA MOUTH [None]
  - RASH MACULAR [None]
